FAERS Safety Report 7403654-0 (Version None)
Quarter: 2011Q2

REPORT INFORMATION
  Report Type: 
  Country: None (occurrence: None)
  Receive Date: 20110408
  Receipt Date: 20110328
  Transmission Date: 20111010
  Serious: Yes (Other)
  Sender: FDA-Public Use
  Company Number: PHHY2011DE16315

PATIENT
  Sex: Male
  Weight: 113 kg

DRUGS (3)
  1. RASILEZ HCT [Suspect]
     Indication: HYPERTENSION
     Dosage: 300/25 MG
     Route: 048
     Dates: start: 20110127, end: 20110221
  2. HUMAN-INSULIN 'NORDISK' [Concomitant]
     Indication: TYPE 2 DIABETES MELLITUS
  3. METFORMIN [Concomitant]
     Indication: TYPE 2 DIABETES MELLITUS
     Dosage: 1000 U, QD
     Route: 048

REACTIONS (2)
  - HAEMATURIA [None]
  - CYSTITIS HAEMORRHAGIC [None]
